FAERS Safety Report 10897455 (Version 1)
Quarter: 2015Q1

REPORT INFORMATION
  Report Type: Spontaneous
  Country: US (occurrence: None)
  Receive Date: 20150302
  Receipt Date: 20150302
  Transmission Date: 20150721
  Serious: No
  Sender: FDA-Public Use
  Company Number: None

PATIENT
  Age: 5 Year
  Sex: Male
  Weight: 27.22 kg

DRUGS (2)
  1. MONTELUKAST 4MG [Suspect]
     Active Substance: MONTELUKAST SODIUM
     Indication: HYPERSENSITIVITY
     Dosage: 1 TABLET, ONCE DAILY
  2. MONTELUKAST 4MG [Suspect]
     Active Substance: MONTELUKAST SODIUM
     Indication: ASTHMA
     Dosage: 1 TABLET, ONCE DAILY

REACTIONS (6)
  - Anxiety [None]
  - Headache [None]
  - Irritability [None]
  - Product substitution issue [None]
  - Insomnia [None]
  - Sneezing [None]

NARRATIVE: CASE EVENT DATE: 20150203
